FAERS Safety Report 14997287 (Version 11)
Quarter: 2021Q1

REPORT INFORMATION
  Report Type: Spontaneous
  Country: US (occurrence: US)
  Receive Date: 20180611
  Receipt Date: 20210113
  Transmission Date: 20210419
  Serious: Yes (Congenital Anomaly, Other)
  Sender: FDA-Public Use
  Company Number: PHEH2018US022336

PATIENT
  Sex: Male

DRUGS (2)
  1. ZOFRAN [Suspect]
     Active Substance: ONDANSETRON HYDROCHLORIDE
     Indication: FOETAL EXPOSURE DURING PREGNANCY
     Dosage: MOTHER^S DOSE: 4 MG, UNK
     Route: 064
  2. ZOFRAN [Suspect]
     Active Substance: ONDANSETRON HYDROCHLORIDE
     Indication: FOETAL EXPOSURE DURING PREGNANCY
     Dosage: MOTHER^S DOSE: 4 MG, Q6H; 4 MG UNK
     Route: 064

REACTIONS (73)
  - Pulmonary oedema [Unknown]
  - Failure to thrive [Unknown]
  - Dermatitis diaper [Unknown]
  - Left-to-right cardiac shunt [Unknown]
  - Deafness [Unknown]
  - Bronchiolitis [Unknown]
  - Autism spectrum disorder [Unknown]
  - Sinusitis [Unknown]
  - Dermatitis [Unknown]
  - Rash [Unknown]
  - Rhinitis [Unknown]
  - Ear infection [Unknown]
  - Heart disease congenital [Unknown]
  - Tricuspid valve incompetence [Unknown]
  - Pulmonary artery dilatation [Unknown]
  - Foetal exposure during pregnancy [Unknown]
  - Viral infection [Unknown]
  - Wheezing [Unknown]
  - Adenoidal hypertrophy [Unknown]
  - Abdominal pain [Unknown]
  - Speech sound disorder [Unknown]
  - Vomiting [Unknown]
  - Pain [Unknown]
  - Plagiocephaly [Unknown]
  - Respiratory distress [Unknown]
  - Developmental delay [Unknown]
  - Cardiomegaly [Unknown]
  - Fatigue [Unknown]
  - Pleural effusion [Unknown]
  - Atelectasis [Unknown]
  - Cardiac murmur [Unknown]
  - Sleep apnoea syndrome [Unknown]
  - Ventricular septal defect [Unknown]
  - Gross motor delay [Unknown]
  - Pneumonia [Unknown]
  - Otitis media [Unknown]
  - Nasal congestion [Unknown]
  - Snoring [Unknown]
  - Oral candidiasis [Unknown]
  - Gastritis [Unknown]
  - Tympanic membrane perforation [Unknown]
  - Eye pain [Unknown]
  - Laryngomalacia [Unknown]
  - Injury [Unknown]
  - Asthma [Unknown]
  - Cerumen impaction [Unknown]
  - Bronchial hyperreactivity [Unknown]
  - Conjunctivitis [Unknown]
  - Feeding disorder [Unknown]
  - Jaundice neonatal [Unknown]
  - Hypermetropia [Unknown]
  - Atrial septal defect [Unknown]
  - Right ventricular failure [Unknown]
  - Aortic valve incompetence [Unknown]
  - Cough [Unknown]
  - Upper respiratory tract infection [Unknown]
  - Dyspnoea [Unknown]
  - Hyperhidrosis [Unknown]
  - Hand-foot-and-mouth disease [Unknown]
  - Dysphagia [Unknown]
  - Eustachian tube dysfunction [Unknown]
  - Tachypnoea [Unknown]
  - Diastolic dysfunction [Unknown]
  - Factor V deficiency [Unknown]
  - Pulmonary valve incompetence [Unknown]
  - Urinary tract infection [Unknown]
  - Abdominal distension [Unknown]
  - Right ventricular enlargement [Unknown]
  - Right atrial enlargement [Unknown]
  - Tonsillar hypertrophy [Unknown]
  - Otorrhoea [Unknown]
  - Speech disorder developmental [Unknown]
  - Hordeolum [Unknown]
